FAERS Safety Report 17694406 (Version 3)
Quarter: 2021Q1

REPORT INFORMATION
  Report Type: Spontaneous
  Country: IN (occurrence: IN)
  Receive Date: 20200422
  Receipt Date: 20210324
  Transmission Date: 20210419
  Serious: Yes (Hospitalization, Other)
  Sender: FDA-Public Use
  Company Number: IN-PFIZER INC-2019526913

PATIENT
  Age: 68 Year
  Sex: Female

DRUGS (3)
  1. ALPELISIB [Concomitant]
     Active Substance: ALPELISIB
     Dosage: UNK
  2. PALBACE [Suspect]
     Active Substance: PALBOCICLIB
     Indication: BREAST CANCER METASTATIC
     Dosage: 125 MG, 1X/DAY
     Route: 048
     Dates: start: 20180111
  3. FEMARA [Concomitant]
     Active Substance: LETROZOLE
     Dosage: 1 DF, DAILY

REACTIONS (5)
  - Musculoskeletal chest pain [Unknown]
  - Pain [Unknown]
  - Neoplasm progression [Unknown]
  - Spinal fracture [Unknown]
  - Asthenia [Unknown]
